FAERS Safety Report 22134003 (Version 3)
Quarter: 2023Q2

REPORT INFORMATION
  Report Type: Spontaneous
  Country: JP (occurrence: None)
  Receive Date: 20230324
  Receipt Date: 20230526
  Transmission Date: 20230722
  Serious: Yes (Other)
  Sender: FDA-Public Use
  Company Number: 2023A066603

PATIENT
  Age: 78 Year
  Sex: Female

DRUGS (5)
  1. ONDEXXYA [Suspect]
     Active Substance: ANDEXANET ALFA
     Indication: Subarachnoid haemorrhage
     Dosage: 400 MG IV AT A RATE OF 30 MG/MIN, FOLLOWED BY 480 MG IV AT A RATE OF 4 MG/MIN FOR 2 HOURS
     Route: 042
  2. EDOXABAN TOSYLATE [Concomitant]
     Active Substance: EDOXABAN TOSYLATE
     Indication: Atrial fibrillation
     Dosage: NUMBER OF SEPARATE DOSAGES UNKNOWN
  3. LIMAPROST [Concomitant]
     Active Substance: LIMAPROST
     Dosage: NUMBER OF SEPARATE DOSAGES UNKNOWN
  4. APIXABAN [Concomitant]
     Active Substance: APIXABAN
     Dosage: DOSE UNKNOWN
  5. APIXABAN [Concomitant]
     Active Substance: APIXABAN
     Dosage: NUMBER OF SEPARATE DOSAGES UNKNOWN

REACTIONS (2)
  - Monoplegia [Recovering/Resolving]
  - Cerebral vasoconstriction [Unknown]
